FAERS Safety Report 5480841-2 (Version None)
Quarter: 2007Q4

REPORT INFORMATION
  Report Type: 
  Country: None (occurrence: None)
  Receive Date: 20071009
  Receipt Date: 20070924
  Transmission Date: 20080405
  Serious: No
  Sender: FDA-Public Use
  Company Number: US-BOEHRINGER INGELHEIM PHARMACEUTICALS, INC.-2007-BP-21648BP

PATIENT
  Sex: Female

DRUGS (3)
  1. MICARDIS HCT [Suspect]
     Indication: HYPERTENSION
     Route: 048
     Dates: start: 20060901, end: 20070920
  2. MICARDIS HCT [Suspect]
     Route: 048
     Dates: start: 20070920
  3. NORVASC [Concomitant]

REACTIONS (3)
  - BLOOD PRESSURE [None]
  - BLOOD PRESSURE INADEQUATELY CONTROLLED [None]
  - DYSPNOEA [None]
